FAERS Safety Report 18101305 (Version 1)
Quarter: 2020Q3

REPORT INFORMATION
  Report Type: Spontaneous
  Country: US (occurrence: US)
  Receive Date: 20200801
  Receipt Date: 20200801
  Transmission Date: 20201103
  Serious: No
  Sender: FDA-Public Use
  Company Number: US-SA-2020SA199042

PATIENT

DRUGS (4)
  1. FLOMAX [Suspect]
     Active Substance: TAMSULOSIN HYDROCHLORIDE
     Dosage: UNK
     Route: 065
  2. TAMSULOSIN HYDROCHLORIDE. [Suspect]
     Active Substance: TAMSULOSIN HYDROCHLORIDE
     Dosage: 4 MG
     Route: 065
  3. WARFARIN [Concomitant]
     Active Substance: WARFARIN
     Indication: ANTICOAGULANT THERAPY
     Dosage: UNK (5MG. TWO DAYS A WEEK. THE OTHER 5 DAYS, HE TAKES 2.5 MG)
     Route: 065
  4. HYDROCODONE [Concomitant]
     Active Substance: HYDROCODONE
     Indication: SPINAL PAIN
     Dosage: 5 MG, PRN (5 MG. 3?4 TIMES PER DAY AS NEEDED)
     Route: 065

REACTIONS (2)
  - Drug ineffective [Unknown]
  - Product packaging issue [Unknown]
